FAERS Safety Report 16277781 (Version 1)
Quarter: 2019Q2

REPORT INFORMATION
  Report Type: Other
  Country: FR (occurrence: FR)
  Receive Date: 20190506
  Receipt Date: 20190506
  Transmission Date: 20190711
  Serious: Yes (Death)
  Sender: FDA-Public Use
  Company Number: FR-ALSI-201900188

PATIENT
  Age: 37 Year
  Sex: Female

DRUGS (9)
  1. HYDROXYZINE [Concomitant]
     Active Substance: HYDROXYZINE HYDROCHLORIDE
  2. THIOPENTAL [Concomitant]
     Active Substance: THIOPENTAL
  3. ATRACURIUM [Concomitant]
     Active Substance: ATRACURIUM
  4. CARBON DIOXIDE. [Suspect]
     Active Substance: CARBON DIOXIDE
     Indication: LAPAROSCOPY
     Route: 033
  5. HALOTHANE. [Concomitant]
     Active Substance: HALOTHANE
  6. DEXTROMORAMIDE [Concomitant]
     Active Substance: DEXTROMORAMIDE
  7. OXYGEN. [Concomitant]
     Active Substance: OXYGEN
  8. DROPERIDOL. [Concomitant]
     Active Substance: DROPERIDOL
  9. NITROUS OXIDE. [Concomitant]
     Active Substance: NITROUS OXIDE

REACTIONS (1)
  - Air embolism [Fatal]
